FAERS Safety Report 7069540-3 (Version None)
Quarter: 2010Q4

REPORT INFORMATION
  Report Type: 
  Country: None (occurrence: None)
  Receive Date: 20101028
  Receipt Date: 20100218
  Transmission Date: 20110411
  Serious: Yes (Death)
  Sender: FDA-Public Use
  Company Number: US-WYE-H13730010

PATIENT
  Age: 45 Year
  Sex: Female

DRUGS (2)
  1. VENLAFAXINE HYDROCHLORIDE [Suspect]
     Dosage: UNKNOWN
     Route: 048
     Dates: start: 20080101, end: 20080101
  2. TRAMADOL HCL [Suspect]
     Dosage: UNKNOWN
     Route: 048
     Dates: start: 20080101, end: 20080101

REACTIONS (1)
  - COMPLETED SUICIDE [None]
